FAERS Safety Report 14491843 (Version 2)
Quarter: 2018Q1

REPORT INFORMATION
  Report Type: Report from Study
  Country: BE (occurrence: BE)
  Receive Date: 20180206
  Receipt Date: 20180206
  Transmission Date: 20180509
  Serious: Yes (Hospitalization)
  Sender: FDA-Public Use
  Company Number: BE-TEVA-2018-BE-853023

PATIENT
  Age: 65 Year
  Sex: Female
  Weight: 52.2 kg

DRUGS (26)
  1. DAFALGAN [Concomitant]
     Active Substance: ACETAMINOPHEN
  2. PEGYLATED LIPOSOMAL DOXORUBICIN HYDROCHLORIDE(PEGYLATED LIPOSOMAL DOXO [Suspect]
     Active Substance: DOXORUBICIN HYDROCHLORIDE
     Indication: OVARIAN GERM CELL EMBRYONAL CARCINOMA STAGE III
     Dates: start: 20161222, end: 20170223
  3. ORISEL JUNIOR ORS [Concomitant]
  4. DIPIPERON [Concomitant]
     Active Substance: PIPAMPERONE
  5. QUESTRAN [Concomitant]
     Active Substance: CHOLESTYRAMINE
  6. MAGNESOL [Concomitant]
  7. NATRIUMBICARBONAAT [Concomitant]
  8. FARLETUZUMAB [Suspect]
     Active Substance: FARLETUZUMAB
     Indication: OVARIAN GERM CELL EMBRYONAL CARCINOMA STAGE III
     Dosage: DAILY DOSE (1-2) 5 AUC
     Route: 042
     Dates: start: 20161222, end: 20161229
  9. FARLETUZUMAB [Suspect]
     Active Substance: FARLETUZUMAB
     Route: 042
     Dates: start: 20170105, end: 20170223
  10. FARLETUZUMAB [Suspect]
     Active Substance: FARLETUZUMAB
     Route: 042
     Dates: start: 20170529, end: 20170602
  11. PANTOMED (PANTOPRAZOLE SODIUM SESQUIHYDRATE) [Concomitant]
     Active Substance: PANTOPRAZOLE SODIUM
  12. LITICAN [Concomitant]
     Active Substance: ALIZAPRIDE HYDROCHLORIDE
  13. CARBOPLATIN. [Suspect]
     Active Substance: CARBOPLATIN
     Route: 042
     Dates: start: 20170412, end: 20170529
  14. FARLETUZUMAB [Suspect]
     Active Substance: FARLETUZUMAB
     Route: 042
     Dates: start: 20170330, end: 20170518
  15. GLUCOSE 5% [Concomitant]
     Active Substance: DEXTROSE
  16. LYSANXIA [Concomitant]
     Active Substance: PRAZEPAM
  17. REDOMEX [Concomitant]
     Active Substance: AMITRIPTYLINE HYDROCHLORIDE
  18. PEGYLATED LIPOSOMAL DOXORUBICIN HYDROCHLORIDE(PEGYLATED LIPOSOMAL DOXO [Suspect]
     Active Substance: DOXORUBICIN HYDROCHLORIDE
     Dates: start: 20170412, end: 20170529
  19. FARLETUZUMAB [Suspect]
     Active Substance: FARLETUZUMAB
     Route: 042
     Dates: start: 20170316, end: 20170316
  20. CARBOPLATIN. [Suspect]
     Active Substance: CARBOPLATIN
     Indication: OVARIAN GERM CELL EMBRYONAL CARCINOMA STAGE III
     Dosage: 4 AUC (CYCLICAL)
     Route: 042
     Dates: start: 20161222, end: 20170223
  21. FURADANTINE [Concomitant]
     Active Substance: NITROFURANTOIN
  22. D-VITAL [Concomitant]
  23. SANDOSTATINE [Concomitant]
     Active Substance: OCTREOTIDE ACETATE
  24. SIPRALEXA [Concomitant]
     Active Substance: ESCITALOPRAM OXALATE
  25. MONOPROST [Concomitant]
     Active Substance: LATANOPROST
  26. COMBIGAN [Concomitant]
     Active Substance: BRIMONIDINE TARTRATE\TIMOLOL MALEATE

REACTIONS (14)
  - Palmar-plantar erythrodysaesthesia syndrome [None]
  - Pancytopenia [None]
  - Diarrhoea [None]
  - Influenza like illness [None]
  - Vomiting [None]
  - Oral candidiasis [None]
  - Urinary tract infection [Recovered/Resolved]
  - Hypoglycaemia [None]
  - Escherichia urinary tract infection [None]
  - Thrombocytopenia [Recovered/Resolved]
  - Alopecia [None]
  - Hyperkalaemia [Recovered/Resolved]
  - Acute kidney injury [Recovered/Resolved]
  - Dehydration [None]

NARRATIVE: CASE EVENT DATE: 20170119
